FAERS Safety Report 7363597-8 (Version None)
Quarter: 2011Q1

REPORT INFORMATION
  Report Type: 
  Country: None (occurrence: None)
  Receive Date: 20110321
  Receipt Date: 20110317
  Transmission Date: 20110831
  Serious: Yes (Other)
  Sender: FDA-Public Use
  Company Number: US-PFIZER INC-2011059262

PATIENT
  Sex: Female

DRUGS (2)
  1. LAMICTAL [Suspect]
     Indication: CONVULSION
     Dosage: 50 MG, 1X/DAY
     Dates: start: 20110221
  2. DILANTIN-125 [Suspect]
     Dosage: UNK
     Dates: start: 20101001

REACTIONS (12)
  - TINNITUS [None]
  - PARTIAL SEIZURES [None]
  - MOOD SWINGS [None]
  - DRUG INEFFECTIVE [None]
  - PALPITATIONS [None]
  - ANGER [None]
  - PHOTOPSIA [None]
  - PANIC ATTACK [None]
  - MUSCLE SPASMS [None]
  - INSOMNIA [None]
  - URTICARIA [None]
  - MALAISE [None]
